FAERS Safety Report 5800390-9 (Version None)
Quarter: 2008Q3

REPORT INFORMATION
  Report Type: 
  Country: None (occurrence: None)
  Receive Date: 20080703
  Receipt Date: 20080624
  Transmission Date: 20090109
  Serious: Yes (Hospitalization)
  Sender: FDA-Public Use
  Company Number: US-MERCK-0807USA00310

PATIENT
  Age: 82 Year
  Sex: Female

DRUGS (1)
  1. COSOPT [Suspect]
     Route: 065
     Dates: start: 20070801, end: 20070901

REACTIONS (2)
  - BRONCHITIS [None]
  - EMPHYSEMA [None]
